FAERS Safety Report 4314249-X (Version None)
Quarter: 2004Q1

REPORT INFORMATION
  Report Type: 
  Country: None (occurrence: None)
  Receive Date: 20040309
  Receipt Date: 20040309
  Transmission Date: 20041129
  Serious: Yes (Hospitalization)
  Sender: FDA-Public Use
  Company Number: None

PATIENT
  Age: 30 Year
  Sex: Male
  Weight: 68.9467 kg

DRUGS (5)
  1. AZATHIOPRINE [Suspect]
     Indication: COLITIS ULCERATIVE
     Dosage: 100MG QD ORAL
     Route: 048
  2. AZATHIOPRINE [Suspect]
     Indication: IRRITABLE BOWEL SYNDROME
     Dosage: 100MG QD ORAL
     Route: 048
  3. PREDNISONE [Concomitant]
  4. ASACOL [Concomitant]
  5. AMBIEN [Concomitant]

REACTIONS (2)
  - FEBRILE NEUTROPENIA [None]
  - PANCYTOPENIA [None]
